FAERS Safety Report 5408627-5 (Version None)
Quarter: 2007Q3

REPORT INFORMATION
  Report Type: 
  Country: None (occurrence: None)
  Receive Date: 20070808
  Receipt Date: 20070731
  Transmission Date: 20080115
  Serious: Yes (Other)
  Sender: FDA-Public Use
  Company Number: US-PFIZER INC-2007063530

PATIENT
  Sex: Male
  Weight: 86.363 kg

DRUGS (5)
  1. VIAGRA [Suspect]
     Indication: ERECTILE DYSFUNCTION
  2. CHOLESTEROL [Concomitant]
  3. DRUG, UNSPECIFIED [Concomitant]
  4. ANTIEPILEPTICS [Concomitant]
  5. COUMADIN [Concomitant]

REACTIONS (1)
  - VISUAL ACUITY REDUCED [None]
